FAERS Safety Report 9499646 (Version 1)
Quarter: 2013Q3

REPORT INFORMATION
  Report Type: Spontaneous
  Country: ZA (occurrence: ZA)
  Receive Date: 20130905
  Receipt Date: 20130905
  Transmission Date: 20140515
  Serious: Yes (Hospitalization)
  Sender: FDA-Public Use
  Company Number: ZA-ROCHE-1270363

PATIENT
  Age: 60 Year
  Sex: Male

DRUGS (2)
  1. RIVOTRIL [Suspect]
     Indication: EPILEPSY
     Route: 065
  2. EPILIM [Concomitant]
     Indication: EPILEPSY
     Route: 042

REACTIONS (1)
  - Gamma-glutamyltransferase increased [Unknown]
